FAERS Safety Report 4726048-5 (Version None)
Quarter: 2005Q3

REPORT INFORMATION
  Report Type: 
  Country: None (occurrence: None)
  Receive Date: 20050726
  Receipt Date: 20050726
  Transmission Date: 20060218
  Serious: Yes (Hospitalization)
  Sender: FDA-Public Use
  Company Number: None

PATIENT
  Age: 50 Year
  Sex: Male
  Weight: 67.586 kg

DRUGS (25)
  1. INSULIN GLARGINE 100 UNITS/ML [Suspect]
     Indication: HYPERGLYCAEMIA
     Dosage: 40 UNITS QD SUBCUTANEOUS
     Route: 058
     Dates: start: 20050528, end: 20050530
  2. ACETAMINOPHEN TAB [Concomitant]
  3. HYDROX/MG [Concomitant]
  4. HYDROX/SIMETHICONE [Concomitant]
  5. ALBUTEROL [Concomitant]
  6. ASPIRIN [Concomitant]
  7. CLONIDINE HCL [Concomitant]
  8. ENOXAPARIN SODIUM [Concomitant]
  9. FLUTICASONE/SALMETEROL [Concomitant]
  10. FUROSEMIDE [Concomitant]
  11. BAPENTIN [Concomitant]
  12. HYDROCHLOROTHIAZIDE [Concomitant]
  13. HUMULIN R [Concomitant]
  14. IPRATROPIUM BR [Concomitant]
  15. LISINOPRIL [Concomitant]
  16. MAG OXIDE [Concomitant]
  17. METOPROLOL [Concomitant]
  18. ONDANSETRON HCL [Concomitant]
  19. OXYCODONE AND ACETAMINOPHEN [Concomitant]
  20. PHENOL [Concomitant]
  21. RANITIDINE HCL [Concomitant]
  22. ROSIGLITAZONE [Concomitant]
  23. SERTRALINE HCL [Concomitant]
  24. WARFARIN NA [Concomitant]
  25. HYDROXYZINE HCL [Concomitant]

REACTIONS (1)
  - HYPOGLYCAEMIA [None]
